FAERS Safety Report 4828109-9 (Version None)
Quarter: 2005Q4

REPORT INFORMATION
  Report Type: 
  Country: None (occurrence: None)
  Receive Date: 20051110
  Receipt Date: 20051027
  Transmission Date: 20060501
  Serious: Yes (Death)
  Sender: FDA-Public Use
  Company Number: 2005S1010536

PATIENT
  Age: 81 Year
  Sex: Male

DRUGS (1)
  1. CLOZAPINE [Suspect]
     Dosage: 12.5 MG; QD; ORAL
     Route: 048
     Dates: start: 20031006, end: 20050824

REACTIONS (1)
  - DEATH [None]
